FAERS Safety Report 25411123 (Version 1)
Quarter: 2025Q2

REPORT INFORMATION
  Report Type: Spontaneous
  Country: US (occurrence: US)
  Receive Date: 20250609
  Receipt Date: 20250609
  Transmission Date: 20250716
  Serious: No
  Sender: NOVITIUM PHARMA
  Company Number: US-NOVITIUMPHARMA-2025USNVP01322

PATIENT
  Age: 47 Year
  Sex: Female
  Weight: 58 kg

DRUGS (1)
  1. ESTRADIOL [Suspect]
     Active Substance: ESTRADIOL
     Indication: Blood oestrogen decreased
     Dosage: 0.1%
     Route: 061
     Dates: start: 20250523, end: 20250523

REACTIONS (5)
  - Urticaria [Unknown]
  - Erythema [Unknown]
  - Pruritus [Unknown]
  - Burning sensation [Unknown]
  - Pain [Unknown]
